FAERS Safety Report 7657541-3 (Version None)
Quarter: 2011Q3

REPORT INFORMATION
  Report Type: 
  Country: None (occurrence: None)
  Receive Date: 20110804
  Receipt Date: 20110726
  Transmission Date: 20111222
  Serious: Yes (Hospitalization)
  Sender: FDA-Public Use
  Company Number: DE-AMGEN-DEUCT2011035614

PATIENT
  Age: 33 Year
  Sex: Female

DRUGS (11)
  1. CETIRIZINE HCL [Concomitant]
     Dosage: 10 MG, ^1-0-1^
  2. VIANI [Concomitant]
     Dosage: 1 DF, ^2-2-2^
  3. FOLSAN [Concomitant]
     Dosage: 25 MG, WEEKLY
     Route: 048
  4. METHOTREXATE [Suspect]
     Indication: PSORIASIS
     Dosage: 25 MG, WEEKLY
     Route: 058
     Dates: start: 20110127
  5. MTX                                /00113801/ [Suspect]
     Indication: PSORIATIC ARTHROPATHY
  6. ETANERCEPT [Suspect]
     Indication: PSORIASIS
     Dosage: 50 MG, 2 TIMES/WK
     Route: 058
     Dates: start: 20110210, end: 20110321
  7. ETANERCEPT [Suspect]
     Indication: PSORIATIC ARTHROPATHY
  8. OPIPRAMOL [Suspect]
     Dosage: 50 MG, ^1-1-2^
     Dates: end: 20110520
  9. HUMIRA [Suspect]
     Indication: PSORIATIC ARTHROPATHY
     Dosage: 40 MG, WEEKLY
     Route: 058
     Dates: start: 20110301
  10. SINGULAIR [Concomitant]
     Dosage: 10 MG, ^0-0-1^
  11. HUMIRA [Suspect]
     Indication: PSORIASIS
     Dosage: 80 MG, WEEKLY
     Route: 058
     Dates: start: 20110329, end: 20110301

REACTIONS (5)
  - GENERAL PHYSICAL HEALTH DETERIORATION [None]
  - PSORIATIC ARTHROPATHY [None]
  - PSORIASIS [None]
  - TETANY [None]
  - PHARYNGITIS [None]
